FAERS Safety Report 6341407-5 (Version None)
Quarter: 2009Q3

REPORT INFORMATION
  Report Type: 
  Country: None (occurrence: None)
  Receive Date: 20090904
  Receipt Date: 20090827
  Transmission Date: 20100115
  Serious: Yes (Hospitalization)
  Sender: FDA-Public Use
  Company Number: CA-ELI_LILLY_AND_COMPANY-CA200908006038

PATIENT
  Age: 25 Year
  Sex: Male

DRUGS (1)
  1. CYMBALTA [Suspect]
     Indication: MAJOR DEPRESSION
     Dosage: 240 MG, DAILY (1/D)

REACTIONS (3)
  - HOSPITALISATION [None]
  - OFF LABEL USE [None]
  - OVERDOSE [None]
